FAERS Safety Report 17946438 (Version 1)
Quarter: 2020Q2

REPORT INFORMATION
  Report Type: Other
  Country: AT (occurrence: AT)
  Receive Date: 20200625
  Receipt Date: 20200625
  Transmission Date: 20200714
  Serious: Yes (Hospitalization, Other)
  Sender: FDA-Public Use
  Company Number: AT-SERVIER-S20005738

PATIENT

DRUGS (15)
  1. ONCASPAR [Suspect]
     Active Substance: PEGASPARGASE
     Dosage: 2500 U/M2, DAY 12 AND DA8 OF BLOCK IIA
     Route: 042
     Dates: start: 201501, end: 201501
  2. TN UNSPECIFIED [DAUNORUBICIN HYDROCHLORIDE] [Suspect]
     Active Substance: DAUNORUBICIN HYDROCHLORIDE
     Indication: ACUTE LYMPHOCYTIC LEUKAEMIA
     Dosage: 4 DOSES, BLOCK IA
     Route: 065
     Dates: start: 201408, end: 2014
  3. ONCASPAR [Suspect]
     Active Substance: PEGASPARGASE
     Indication: B PRECURSOR TYPE ACUTE LEUKAEMIA
     Dosage: 2500 U/M2, DAY 12 AND DAY 26 OF BLOCK IA
     Route: 042
     Dates: start: 201408, end: 201408
  4. ENDOXAN [Suspect]
     Active Substance: CYCLOPHOSPHAMIDE
     Indication: ACUTE LYMPHOCYTIC LEUKAEMIA
     Dosage: UNK, BLOCK IB
     Route: 065
  5. ALEXAN (CYTARABINE) [Suspect]
     Active Substance: CYTARABINE
     Indication: ACUTE LYMPHOCYTIC LEUKAEMIA
     Dosage: UNK, BLOCK IB
     Route: 065
  6. TN UNSPECIFIED [DEXAMETHASONE SODIUM SUCCINATE] [Suspect]
     Active Substance: DEXAMETHASONE SODIUM SUCCINATE
     Indication: ACUTE LYMPHOCYTIC LEUKAEMIA
     Dosage: UNK, BLOCK IIA
     Route: 065
     Dates: start: 201501, end: 201502
  7. TN UNSPECIFIED [PREDNISONE ACETATE] [Suspect]
     Active Substance: PREDNISONE ACETATE
     Indication: ACUTE LYMPHOCYTIC LEUKAEMIA
     Dosage: UNK, BLOCK IA
     Route: 065
     Dates: start: 201408, end: 2014
  8. TN UNSPECIFIED [VINCRISTINE SULFATE] [Suspect]
     Active Substance: VINCRISTINE SULFATE
     Indication: ACUTE LYMPHOCYTIC LEUKAEMIA
     Dosage: UNK, BLOCK IA
     Route: 065
     Dates: start: 201408, end: 2014
  9. TN UNSPECIFIED [VINCRISTINE SULFATE] [Suspect]
     Active Substance: VINCRISTINE SULFATE
     Dosage: UNK, BLOCK IIA
     Route: 065
     Dates: start: 201501, end: 2015
  10. TN UNSPECIFIED [DOXORUBICIN HYDROCHLORIDE] [Suspect]
     Active Substance: DOXORUBICIN HYDROCHLORIDE
     Indication: ACUTE LYMPHOCYTIC LEUKAEMIA
     Dosage: UNK, BLOCK IIA
     Route: 065
     Dates: start: 201501, end: 201501
  11. TN UNSPECIFIED [Concomitant]
     Indication: GASTRIC INFECTION
     Dosage: UNK
     Route: 065
     Dates: start: 201408, end: 201612
  12. TN UNSPECIFIED [METHOTREXATE SODIUM] [Suspect]
     Active Substance: METHOTREXATE SODIUM
     Dosage: UNK, BLOCK IIA
     Route: 037
     Dates: end: 201502
  13. TN UNSPECIFIED [METHOTREXATE SODIUM] [Suspect]
     Active Substance: METHOTREXATE SODIUM
     Indication: ACUTE LYMPHOCYTIC LEUKAEMIA
     Dosage: UNK, BLOCK IA
     Route: 037
     Dates: start: 201408
  14. TN UNSPECIFIED [METHOTREXATE SODIUM] [Suspect]
     Active Substance: METHOTREXATE SODIUM
     Dosage: UNK, BLOCK IB
     Route: 037
  15. TN UNSPECIFIED [MERCAPTOPURINE] [Suspect]
     Active Substance: MERCAPTOPURINE
     Indication: ACUTE LYMPHOCYTIC LEUKAEMIA
     Dosage: UNK, BLOCK IB
     Route: 065
     Dates: start: 2014, end: 2014

REACTIONS (1)
  - Pulmonary mucormycosis [Recovered/Resolved]

NARRATIVE: CASE EVENT DATE: 201502
